FAERS Safety Report 17614745 (Version 2)
Quarter: 2020Q2

REPORT INFORMATION
  Report Type: Report from Study
  Country: AR (occurrence: AR)
  Receive Date: 20200402
  Receipt Date: 20200417
  Transmission Date: 20200713
  Serious: Yes (Other)
  Sender: FDA-Public Use
  Company Number: AR-ASTRAZENECA-2019SF33630

PATIENT
  Age: 23331 Day
  Sex: Female

DRUGS (5)
  1. DIUREX [Concomitant]
     Dosage: 0.25
     Route: 065
  2. LYNPARZA [Suspect]
     Active Substance: OLAPARIB
     Indication: OVARIAN CANCER
     Dosage: 600.0MG UNKNOWN
     Route: 048
     Dates: start: 20190628
  3. LYNPARZA [Suspect]
     Active Substance: OLAPARIB
     Indication: OVARIAN CANCER
     Dosage: RAISED 100 MG OF THE MEDICATION UNKNOWN
     Route: 048
  4. T4 [Concomitant]
     Active Substance: LEVOTHYROXINE
     Dosage: 88.0MG UNKNOWN
     Route: 065
  5. LYNPARZA [Suspect]
     Active Substance: OLAPARIB
     Indication: OVARIAN CANCER
     Dosage: 300.0MG UNKNOWN
     Route: 048
     Dates: start: 20190628

REACTIONS (12)
  - Blood urea increased [Unknown]
  - Bronchitis [Unknown]
  - Hepatic cancer [Recovering/Resolving]
  - Dry skin [Unknown]
  - Arthralgia [Unknown]
  - Joint swelling [Recovering/Resolving]
  - Burning sensation [Unknown]
  - Erythema [Recovering/Resolving]
  - Vein disorder [Recovered/Resolved]
  - Muscle spasms [Unknown]
  - Peripheral swelling [Not Recovered/Not Resolved]
  - Malignant neoplasm progression [Unknown]

NARRATIVE: CASE EVENT DATE: 20190827
